FAERS Safety Report 4910444-7 (Version None)
Quarter: 2006Q1

REPORT INFORMATION
  Report Type: 
  Country: None (occurrence: None)
  Receive Date: 20060209
  Receipt Date: 20060131
  Transmission Date: 20060701
  Serious: Yes (Hospitalization)
  Sender: FDA-Public Use
  Company Number: 2006-01-1947

PATIENT
  Age: 56 Year
  Sex: Female

DRUGS (1)
  1. TEMODAR [Suspect]
     Indication: GLIOMA
     Dosage: 150 MG/M^2 ORAL
     Route: 048
     Dates: start: 20060107, end: 20060112

REACTIONS (6)
  - DYSPNOEA [None]
  - HEADACHE [None]
  - HYPOVENTILATION [None]
  - LETHARGY [None]
  - NAUSEA [None]
  - VOMITING [None]
